FAERS Safety Report 14141600 (Version 1)
Quarter: 2017Q4

REPORT INFORMATION
  Report Type: Spontaneous
  Country: US (occurrence: US)
  Receive Date: 20171029
  Receipt Date: 20171029
  Transmission Date: 20180321
  Serious: Yes (Other)
  Sender: FDA-Public Use
  Company Number: None

PATIENT
  Age: 51 Year
  Sex: Female
  Weight: 92.25 kg

DRUGS (3)
  1. VIT B [Concomitant]
     Active Substance: VITAMIN B
  2. BURPROPION XL 300MG [Suspect]
     Active Substance: BUPROPION
     Indication: DEPRESSION
     Dosage: ?          QUANTITY:30 TABLET(S);?
     Route: 048
     Dates: start: 20170923, end: 20171023
  3. C [Concomitant]

REACTIONS (4)
  - Fatigue [None]
  - Feeling abnormal [None]
  - Self-injurious ideation [None]
  - Thinking abnormal [None]

NARRATIVE: CASE EVENT DATE: 20170925
